FAERS Safety Report 5523006-8 (Version None)
Quarter: 2007Q4

REPORT INFORMATION
  Report Type: 
  Country: None (occurrence: None)
  Receive Date: 20071121
  Receipt Date: 20071112
  Transmission Date: 20080405
  Serious: Yes (Hospitalization)
  Sender: FDA-Public Use
  Company Number: SE-BAYER-200716896GDS

PATIENT
  Sex: Male

DRUGS (1)
  1. CIPROXIN [Suspect]
     Indication: ABDOMINAL INFECTION
     Route: 065

REACTIONS (3)
  - COUGH [None]
  - DIARRHOEA [None]
  - EOSINOPHILIA [None]
